FAERS Safety Report 6193398-8 (Version None)
Quarter: 2009Q2

REPORT INFORMATION
  Report Type: 
  Country: None (occurrence: None)
  Receive Date: 20090518
  Receipt Date: 20090506
  Transmission Date: 20091009
  Serious: Yes (Other)
  Sender: FDA-Public Use
  Company Number: FR-ELI_LILLY_AND_COMPANY-FR200905002014

PATIENT
  Age: 56 Year
  Sex: Male

DRUGS (1)
  1. FORTEO [Suspect]
     Indication: OSTEOPOROSIS
     Dosage: 20 UG, DAILY (1/D)
     Route: 065
     Dates: start: 20090319

REACTIONS (7)
  - ANOREXIA [None]
  - ASTHENIA [None]
  - BLEEDING TIME PROLONGED [None]
  - DEPRESSED MOOD [None]
  - INSOMNIA [None]
  - NAUSEA [None]
  - PAIN [None]
